FAERS Safety Report 15315471 (Version 5)
Quarter: 2019Q1

REPORT INFORMATION
  Report Type: Spontaneous
  Country: US (occurrence: US)
  Receive Date: 20180824
  Receipt Date: 20190204
  Transmission Date: 20190417
  Serious: No
  Sender: FDA-Public Use
  Company Number: US-SA-2018SA232761

PATIENT
  Age: 64 Year
  Sex: Female

DRUGS (4)
  1. PRALUENT [Suspect]
     Active Substance: ALIROCUMAB
     Dosage: 75 MG, QOW
     Dates: start: 2018
  2. PRALUENT [Suspect]
     Active Substance: ALIROCUMAB
     Indication: BLOOD CHOLESTEROL
     Dosage: 75 MG, QOW
     Route: 058
     Dates: start: 2018
  3. PRALUENT [Suspect]
     Active Substance: ALIROCUMAB
     Dosage: 75 MG, Q3W
     Route: 058
     Dates: start: 2018, end: 2018
  4. RANEXA [Concomitant]
     Active Substance: RANOLAZINE

REACTIONS (11)
  - Drug metabolising enzyme test abnormal [Unknown]
  - Feeling abnormal [Unknown]
  - Fibromyalgia [Unknown]
  - Migraine [Unknown]
  - Influenza like illness [Unknown]
  - Nausea [Unknown]
  - Pain [Unknown]
  - Underdose [Unknown]
  - Product use issue [Unknown]
  - Fatigue [Unknown]
  - Device use issue [Unknown]

NARRATIVE: CASE EVENT DATE: 2018
